FAERS Safety Report 18570265 (Version 2)
Quarter: 2020Q4

REPORT INFORMATION
  Report Type: Report from Study
  Country: CN (occurrence: CN)
  Receive Date: 20201202
  Receipt Date: 20201203
  Transmission Date: 20210114
  Serious: Yes (Other)
  Sender: FDA-Public Use
  Company Number: CN-PFIZER INC-2020470988

PATIENT

DRUGS (6)
  1. ETOPOSIDE. [Suspect]
     Active Substance: ETOPOSIDE
     Indication: HAEMOPHAGOCYTIC LYMPHOHISTIOCYTOSIS
     Dosage: 100 MG/M2, CYCLIC (100 MG/M2 ON THE FIRST DAY OF EACH WEEK)
  2. METHYLPREDNISOLONE SODIUM SUCCINATE. [Suspect]
     Active Substance: METHYLPREDNISOLONE SODIUM SUCCINATE
     Dosage: 1 MG/KG, CYCLIC (1 MG/KG/DAY (DAYS 8-14) FOLLOWED BY GRADUAL TAPERING
  3. METHYLPREDNISOLONE SODIUM SUCCINATE. [Suspect]
     Active Substance: METHYLPREDNISOLONE SODIUM SUCCINATE
     Indication: HAEMOPHAGOCYTIC LYMPHOHISTIOCYTOSIS
     Dosage: 15 MG/KG, CYCLIC (15 MG/KG/DAY (DAYS 1-3)
  4. PEG/L-ASPARAGINASE [Suspect]
     Active Substance: PEGASPARGASE
     Indication: HAEMOPHAGOCYTIC LYMPHOHISTIOCYTOSIS
     Dosage: UNK, CYCLIC (2000 U/M2, ON DAY 5)
  5. DOXORUBICIN [Suspect]
     Active Substance: DOXORUBICIN
     Indication: HAEMOPHAGOCYTIC LYMPHOHISTIOCYTOSIS
     Dosage: 25 MG/M2, CYCLIC (25 MG/M2 ON DAY 1)
  6. METHYLPREDNISOLONE SODIUM SUCCINATE. [Suspect]
     Active Substance: METHYLPREDNISOLONE SODIUM SUCCINATE
     Dosage: 2 MG/KG, CYCLIC (2 MG/KG/DAY (DAYS 4-7))

REACTIONS (1)
  - Pancreatitis [Recovered/Resolved]
